FAERS Safety Report 5094442-1 (Version None)
Quarter: 2006Q3

REPORT INFORMATION
  Report Type: 
  Country: None (occurrence: None)
  Receive Date: 20060828
  Receipt Date: 20060822
  Transmission Date: 20061208
  Serious: Yes (Other)
  Sender: FDA-Public Use
  Company Number: HQWYE828122AUG06

PATIENT

DRUGS (1)
  1. CORDARONE [Suspect]
     Dosage: INTRAVENOUS
     Route: 042

REACTIONS (2)
  - PHARMACEUTICAL PRODUCT COMPLAINT [None]
  - SHOCK [None]
